FAERS Safety Report 19839211 (Version 1)
Quarter: 2021Q3

REPORT INFORMATION
  Report Type: Spontaneous
  Country: US (occurrence: US)
  Receive Date: 20210915
  Receipt Date: 20210915
  Transmission Date: 20211014
  Serious: Yes (Disabling)
  Sender: FDA-Public Use
  Company Number: None

PATIENT
  Age: 7 Year
  Sex: Male
  Weight: 31.5 kg

DRUGS (2)
  1. HYDROCORTISONE OINTMENT 2.5% [Suspect]
     Active Substance: HYDROCORTISONE
     Indication: ECZEMA
     Dosage: ?          QUANTITY:16 TUBES;?
     Route: 061
     Dates: start: 20140101, end: 20210501
  2. TACROLIMUS OINTMENT 0.1% [Suspect]
     Active Substance: TACROLIMUS
     Indication: ECZEMA
     Dosage: ?          QUANTITY:10 TUBE;?
     Route: 061
     Dates: start: 20210401, end: 20210501

REACTIONS (8)
  - Rash [None]
  - Pruritus [None]
  - Skin exfoliation [None]
  - Skin laceration [None]
  - Wound [None]
  - Steroid withdrawal syndrome [None]
  - Skin lesion [None]
  - Insomnia [None]

NARRATIVE: CASE EVENT DATE: 20210424
